FAERS Safety Report 11128532 (Version 7)
Quarter: 2017Q1

REPORT INFORMATION
  Report Type: Report from Study
  Country: JP (occurrence: JP)
  Receive Date: 20150521
  Receipt Date: 20170119
  Transmission Date: 20170428
  Serious: Yes (Death, Hospitalization, Other)
  Sender: FDA-Public Use
  Company Number: JP-INCYTE CORPORATION-2015IN002181

PATIENT
  Age: 73 Year
  Sex: Female
  Weight: 45 kg

DRUGS (10)
  1. ISCOTIN [Concomitant]
     Active Substance: ISONIAZID
     Indication: INFECTION PROPHYLAXIS
     Dosage: 300 MG, QD
     Route: 048
     Dates: start: 20141125, end: 20150312
  2. ACICLOVIN [Concomitant]
     Active Substance: ACYCLOVIR
     Indication: PRODUCT USED FOR UNKNOWN INDICATION
  3. IRRADIATED FROZEN THAWED RED CELLS [Concomitant]
     Indication: MYELOFIBROSIS
     Dosage: 2 IU, QD
     Route: 065
     Dates: end: 20150327
  4. ACICLOVIN [Concomitant]
     Active Substance: ACYCLOVIR
     Indication: INFECTION PROPHYLAXIS
     Dosage: 200 MG, QD
     Route: 048
     Dates: start: 20141125, end: 20150226
  5. PRIMOBOLAN-DEPOT [Concomitant]
     Active Substance: METHENOLONE ENANTHATE
     Indication: MYELOFIBROSIS
     Dosage: 30 MG, QD
     Route: 048
     Dates: end: 20150106
  6. ISCOTIN [Concomitant]
     Active Substance: ISONIAZID
     Indication: PRODUCT USED FOR UNKNOWN INDICATION
  7. JAKAVI [Suspect]
     Active Substance: RUXOLITINIB
     Dosage: 20 MG, BID
     Route: 048
     Dates: start: 20150220, end: 20150227
  8. JAKAVI [Suspect]
     Active Substance: RUXOLITINIB
     Dosage: 15 MG, BID
     Route: 048
     Dates: start: 20150121, end: 20150219
  9. JAKAVI [Suspect]
     Active Substance: RUXOLITINIB
     Indication: MYELOFIBROSIS
     Dosage: 5 MG, BID
     Route: 048
     Dates: start: 20141125, end: 20141202
  10. JAKAVI [Suspect]
     Active Substance: RUXOLITINIB
     Dosage: 10 MG, BID
     Route: 048
     Dates: start: 20141203, end: 20150120

REACTIONS (14)
  - Acute kidney injury [Fatal]
  - Blood bilirubin increased [Fatal]
  - Aspartate aminotransferase increased [Recovering/Resolving]
  - Myelofibrosis [Fatal]
  - Disseminated cryptococcosis [Recovering/Resolving]
  - Coma [Unknown]
  - Alanine aminotransferase increased [Recovering/Resolving]
  - Meningitis cryptococcal [Fatal]
  - Cardiac failure congestive [Recovering/Resolving]
  - Bone marrow failure [Fatal]
  - White blood cell count increased [Not Recovered/Not Resolved]
  - Eosinophil count increased [Unknown]
  - Blood pressure diastolic decreased [Unknown]
  - Blood creatinine increased [Unknown]

NARRATIVE: CASE EVENT DATE: 20141126
